FAERS Safety Report 4302205-7 (Version None)
Quarter: 2004Q1

REPORT INFORMATION
  Report Type: 
  Country: None (occurrence: None)
  Receive Date: 20040220
  Receipt Date: 20040115
  Transmission Date: 20041129
  Serious: Yes (Other)
  Sender: FDA-Public Use
  Company Number: JP-JNJFOC-20040203498

PATIENT
  Age: 53 Year
  Sex: Female

DRUGS (17)
  1. REMICADE [Suspect]
     Indication: RHEUMATOID ARTHRITIS
     Dosage: 150 MG, 1 IN 1 AS NECESSARY, INTRAVENOUS DRIP
     Route: 041
     Dates: start: 20031117, end: 20031117
  2. ALFACALCIDOL (ALFACALCIDOL) [Concomitant]
  3. DIBASIC CALCIUM PHOSPHATE (CALCIUM PHOSPHATE DIBASIC) [Concomitant]
  4. DIMETICONE (DIMETICONE) [Concomitant]
  5. ECABET SODIUM (ECABET) [Concomitant]
  6. ENTERONON R (ENTERONON R) [Concomitant]
  7. FLURBIPROFEN [Concomitant]
  8. LANSOPRAZOLE [Concomitant]
  9. L-ASPARTATE POTASSIUM (POTASSIUM) [Concomitant]
  10. LOXOPROFEN SODIUM (LOXOPROFEN SODIUM) [Concomitant]
  11. MECOBALAMIN (MECOBALAMIN) [Concomitant]
  12. METHOTREXATE [Concomitant]
  13. PANTETHINE (PANTETHINE) [Concomitant]
  14. POLAPREZINC (POLAPREZINC) [Concomitant]
  15. PREDNISOLONE [Concomitant]
  16. SODIUM RISEDRONATE HYDRATE (RISEDRONATE SODIUM) [Concomitant]
  17. VANCOMYCIN HCL [Concomitant]

REACTIONS (1)
  - CLOSTRIDIUM COLITIS [None]
